FAERS Safety Report 9720835 (Version 2)
Quarter: 2014Q1

REPORT INFORMATION
  Report Type: Spontaneous
  Country: AR (occurrence: AR)
  Receive Date: 20131129
  Receipt Date: 20140225
  Transmission Date: 20141002
  Serious: Yes (Hospitalization, Other)
  Sender: FDA-Public Use
  Company Number: AR-AMGEN-ARGSP2013083660

PATIENT
  Age: 79 Year
  Sex: Female

DRUGS (8)
  1. ENBREL [Suspect]
     Indication: RHEUMATOID ARTHRITIS
     Dosage: 50 MG, WEEKLY
     Route: 065
     Dates: start: 20090701
  2. INSULIN [Concomitant]
     Indication: DIABETES MELLITUS
     Dosage: 21 IU, DAILY
     Dates: start: 1994
  3. CELEBREX [Concomitant]
     Indication: ARTHRITIS
     Dosage: 200 MG, 1X/DAY
  4. LYRICA [Concomitant]
     Indication: PAIN
     Dosage: 75 MG, 1X/DAY
  5. T4 [Concomitant]
     Dosage: 250 MG, 1X/DAY
  6. SOMIT [Concomitant]
     Dosage: 10 MG, 1X/DAY
  7. RIVOTRIL [Concomitant]
     Dosage: 2 MG, 1X/DAY
  8. LOSACOR [Concomitant]
     Indication: HYPERTENSION
     Dosage: 50 MG, 2X/DAY

REACTIONS (4)
  - Pain in extremity [Recovering/Resolving]
  - Arthralgia [Recovering/Resolving]
  - Diabetes mellitus inadequate control [Not Recovered/Not Resolved]
  - Weight increased [Unknown]
